FAERS Safety Report 8013249-6 (Version None)
Quarter: 2011Q4

REPORT INFORMATION
  Report Type: 
  Country: None (occurrence: None)
  Receive Date: 20111229
  Receipt Date: 20111214
  Transmission Date: 20120403
  Serious: Yes (Hospitalization)
  Sender: FDA-Public Use
  Company Number: US-SANOFI-AVENTIS-2011SA074896

PATIENT
  Age: 64 Year
  Sex: Male
  Weight: 73.48 kg

DRUGS (2)
  1. RILUTEK [Suspect]
     Dates: start: 20111119
  2. RILUTEK [Suspect]
     Indication: AMYOTROPHIC LATERAL SCLEROSIS
     Route: 048
     Dates: start: 20111104, end: 20111111

REACTIONS (4)
  - PULMONARY EMBOLISM [None]
  - DIAPHRAGMATIC DISORDER [None]
  - DYSPNOEA [None]
  - FATIGUE [None]
